FAERS Safety Report 10203250 (Version 1)
Quarter: 2014Q2

REPORT INFORMATION
  Report Type: Report from Study
  Country: IT (occurrence: IT)
  Receive Date: 20140529
  Receipt Date: 20140529
  Transmission Date: 20141212
  Serious: Yes (Life-Threatening, Hospitalization)
  Sender: FDA-Public Use
  Company Number: IT-AMGEN-ITANI2014038126

PATIENT
  Age: 64 Year
  Sex: Male

DRUGS (11)
  1. PEGFILGRASTIM [Suspect]
     Indication: HODGKIN^S DISEASE
     Dosage: 6 MG, UNK
     Route: 058
     Dates: start: 20071011
  2. VINBLASTINA [Concomitant]
     Dosage: 10 MG, UNK
     Route: 042
     Dates: start: 20071102
  3. PDN [Concomitant]
     Indication: HODGKIN^S DISEASE
     Dosage: 50 MG, UNK
     Route: 048
     Dates: start: 20071102
  4. PROCARBAZINE [Concomitant]
     Indication: HODGKIN^S DISEASE
     Dosage: 150 MG, UNK
     Route: 048
     Dates: start: 20071102
  5. CHLORAMBUCIL [Concomitant]
     Indication: HODGKIN^S DISEASE
     Dosage: 10 MG, UNK
     Route: 048
     Dates: start: 20071102
  6. ADRIAMYCIN                         /00330901/ [Concomitant]
     Indication: HODGKIN^S DISEASE
     Dosage: 55 MG, UNK
     Route: 042
     Dates: start: 20071011
  7. VINCRISTIN [Concomitant]
     Indication: HODGKIN^S DISEASE
     Dosage: 1 MG, UNK
     Route: 042
     Dates: start: 20071011
  8. BLEOMYCIN [Concomitant]
     Indication: HODGKIN^S DISEASE
     Dosage: 10 UNIT, UNK
     Route: 042
     Dates: start: 20071011
  9. ETOPOPHOS [Concomitant]
     Indication: HODGKIN^S DISEASE
     Dosage: 200-200-150 MG, UNK
     Route: 042
     Dates: start: 20071011
  10. METOCLOPRAMIDE [Concomitant]
     Dosage: 30 MG, UNK
     Route: 048
     Dates: start: 20071011, end: 20071108
  11. OMEPRAZOL                          /00661201/ [Concomitant]
     Dosage: 20 MG, UNK
     Route: 048
     Dates: start: 20071011, end: 20071108

REACTIONS (1)
  - Chest pain [Not Recovered/Not Resolved]
